FAERS Safety Report 16517390 (Version 1)
Quarter: 2019Q3

REPORT INFORMATION
  Report Type: Spontaneous
  Country: US (occurrence: US)
  Receive Date: 20190702
  Receipt Date: 20190702
  Transmission Date: 20191004
  Serious: Yes (Other)
  Sender: FDA-Public Use
  Company Number: None

PATIENT
  Age: 51 Year
  Sex: Female
  Weight: 88.56 kg

DRUGS (15)
  1. IBUPROFEN. [Concomitant]
     Active Substance: IBUPROFEN
  2. XANAX [Concomitant]
     Active Substance: ALPRAZOLAM
  3. TEMOZOLOMIDE. [Suspect]
     Active Substance: TEMOZOLOMIDE
     Indication: LUNG NEOPLASM MALIGNANT
     Route: 048
     Dates: start: 20181226, end: 20190702
  4. FLONASE [Concomitant]
     Active Substance: FLUTICASONE PROPIONATE
  5. FUROSEMIDE. [Concomitant]
     Active Substance: FUROSEMIDE
  6. ZOFRAN [Concomitant]
     Active Substance: ONDANSETRON HYDROCHLORIDE
  7. SINGULAIR [Concomitant]
     Active Substance: MONTELUKAST SODIUM
  8. DILAUDID [Concomitant]
     Active Substance: HYDROMORPHONE HYDROCHLORIDE
  9. ZYRTEC [Concomitant]
     Active Substance: CETIRIZINE HYDROCHLORIDE
  10. LEVALBUTEROL. [Concomitant]
     Active Substance: LEVALBUTEROL
  11. ATIVAN [Concomitant]
     Active Substance: LORAZEPAM
  12. PROCHLORPERAZINE. [Concomitant]
     Active Substance: PROCHLORPERAZINE
  13. BENADRYL [Concomitant]
     Active Substance: DIPHENHYDRAMINE HYDROCHLORIDE
  14. ATROVENT [Concomitant]
     Active Substance: IPRATROPIUM BROMIDE
  15. CBD OIL [Concomitant]
     Active Substance: CANNABIDIOL\HERBALS

REACTIONS (1)
  - Disease progression [None]

NARRATIVE: CASE EVENT DATE: 20190702
